FAERS Safety Report 5179264-5 (Version None)
Quarter: 2006Q4

REPORT INFORMATION
  Report Type: 
  Country: None (occurrence: None)
  Receive Date: 20061219
  Receipt Date: 20060929
  Transmission Date: 20070319
  Serious: Yes (Hospitalization)
  Sender: FDA-Public Use
  Company Number: CH-MERCK-0609CHE00017

PATIENT
  Age: 59 Year
  Sex: Female

DRUGS (2)
  1. ZOCOR [Suspect]
     Indication: HYPERLIPIDAEMIA
     Route: 048
  2. NIFEDIPINE [Suspect]
     Route: 048

REACTIONS (4)
  - ASCITES [None]
  - DRUG INTERACTION [None]
  - MYALGIA [None]
  - OLIGURIA [None]
